FAERS Safety Report 8549768-3 (Version None)
Quarter: 2012Q3

REPORT INFORMATION
  Report Type: 
  Country: None (occurrence: None)
  Receive Date: 20120730
  Receipt Date: 20120724
  Transmission Date: 20120928
  Serious: No
  Sender: FDA-Public Use
  Company Number: US-PFIZER INC-2012179281

PATIENT
  Sex: Male
  Weight: 98 kg

DRUGS (4)
  1. QUINAPRIL [Concomitant]
     Indication: BLOOD PRESSURE ABNORMAL
     Dosage: 20 MG, DAILY
  2. LEVOTHYROXINE SODIUM [Concomitant]
     Dosage: 88 UG (IN THE MORNING), DAILY
  3. ADVIL [Suspect]
     Indication: HEADACHE
  4. ADVIL [Suspect]
     Indication: PAIN
     Dosage: UNK

REACTIONS (5)
  - FATIGUE [None]
  - SOMNOLENCE [None]
  - DIZZINESS [None]
  - ASTHENIA [None]
  - FEELING ABNORMAL [None]
